FAERS Safety Report 25462988 (Version 1)
Quarter: 2025Q2

REPORT INFORMATION
  Report Type: Spontaneous
  Country: US (occurrence: US)
  Receive Date: 20250620
  Receipt Date: 20250620
  Transmission Date: 20250716
  Serious: No
  Sender: GALPHARM INTERNATIONAL
  Company Number: US-PERRIGO-25US001995

PATIENT

DRUGS (1)
  1. DICLOFENAC SODIUM [Suspect]
     Active Substance: DICLOFENAC SODIUM
     Indication: Musculoskeletal discomfort
     Route: 061

REACTIONS (2)
  - Drug effect less than expected [Unknown]
  - Product administered at inappropriate site [Unknown]
